FAERS Safety Report 24228890 (Version 1)
Quarter: 2024Q3

REPORT INFORMATION
  Report Type: Spontaneous
  Country: GB (occurrence: GB)
  Receive Date: 20240820
  Receipt Date: 20240820
  Transmission Date: 20241016
  Serious: Yes (Life-Threatening, Hospitalization, Other)
  Sender: MERCK
  Company Number: GB-009507513-2408GBR004700

PATIENT
  Age: 26 Year
  Sex: Female
  Weight: 93 kg

DRUGS (8)
  1. SUGAMMADEX SODIUM [Suspect]
     Active Substance: SUGAMMADEX SODIUM
     Indication: Neuromuscular blockade reversal
     Dosage: 400 MILLIGRAM / APPROXIMATELY 4 MG KG?1
  2. FENTANYL [Concomitant]
     Active Substance: FENTANYL\FENTANYL CITRATE
     Dosage: 1 MICROGRAM KG?1
  3. PROPOFOL [Concomitant]
     Active Substance: PROPOFOL
     Dosage: 2 MG KG?1
  4. ROCURONIUM BROMIDE [Concomitant]
     Active Substance: ROCURONIUM BROMIDE
     Dosage: 1 MG KG?1
  5. SEVOFLURANE [Concomitant]
     Active Substance: SEVOFLURANE
     Dosage: 2.2 PERCENT
  6. DEXAMETHASONE [Concomitant]
     Active Substance: DEXAMETHASONE
     Dosage: 6.6 MILLIGRAM
  7. DICLOFENAC [Concomitant]
     Active Substance: DICLOFENAC
     Dosage: 75 MILLIGRAM
  8. MORPHINE [Concomitant]
     Active Substance: MORPHINE
     Dosage: 5 MILLIGRAM

REACTIONS (2)
  - Cardiac arrest [Recovered/Resolved]
  - Sinus bradycardia [Recovered/Resolved]
